FAERS Safety Report 6345295-2 (Version None)
Quarter: 2009Q3

REPORT INFORMATION
  Report Type: 
  Country: None (occurrence: None)
  Receive Date: 20090821
  Receipt Date: 20090626
  Transmission Date: 20100115
  Serious: No
  Sender: FDA-Public Use
  Company Number: 8048343

PATIENT
  Sex: Female
  Weight: 93.64 kg

DRUGS (5)
  1. CIMZIA [Suspect]
     Indication: CROHN'S DISEASE
     Dosage: 400 MG /M SC
     Route: 058
  2. PENTASA [Concomitant]
  3. SPIRONOLACTONE [Concomitant]
  4. MICROGESTIN 1.5/30 [Concomitant]
  5. SERTRALINE HCL [Concomitant]

REACTIONS (1)
  - ALOPECIA [None]
